FAERS Safety Report 8159106 (Version 2)
Quarter: 2015Q2

REPORT INFORMATION
  Report Type: Spontaneous
  Country: US (occurrence: US)
  Receive Date: 20110927
  Receipt Date: 20150521
  Transmission Date: 20150821
  Serious: Yes (Congenital Anomaly, Other)
  Sender: FDA-Public Use
  Company Number: US-ELI_LILLY_AND_COMPANY-US201109004113

PATIENT

DRUGS (12)
  1. PROZAC [Suspect]
     Active Substance: FLUOXETINE HYDROCHLORIDE
     Indication: PRODUCT USED FOR UNKNOWN INDICATION
     Dosage: 20 MG, UNKNOWN
     Route: 064
  2. PHENERGAN [Concomitant]
     Active Substance: PROMETHAZINE HYDROCHLORIDE
     Route: 064
  3. PROZAC [Suspect]
     Active Substance: FLUOXETINE HYDROCHLORIDE
     Dosage: 40 MG, UNKNOWN
     Route: 064
  4. PRENAT                             /07714001/ [Concomitant]
     Route: 064
  5. PROZAC [Suspect]
     Active Substance: FLUOXETINE HYDROCHLORIDE
     Indication: PRODUCT USED FOR UNKNOWN INDICATION
     Dosage: 20 MG, UNKNOWN
     Route: 064
  6. IMODIUM [Concomitant]
     Active Substance: LOPERAMIDE HYDROCHLORIDE
     Route: 064
  7. OXYTOCIN. [Concomitant]
     Active Substance: OXYTOCIN
     Route: 064
  8. PHENERGAN [Concomitant]
     Active Substance: PROMETHAZINE HYDROCHLORIDE
     Route: 064
  9. PROZAC [Suspect]
     Active Substance: FLUOXETINE HYDROCHLORIDE
     Dosage: 40 MG, UNKNOWN
     Route: 064
  10. PRENAT                             /07714001/ [Concomitant]
     Route: 064
  11. OXYTOCIN. [Concomitant]
     Active Substance: OXYTOCIN
     Route: 064
  12. IMODIUM [Concomitant]
     Active Substance: LOPERAMIDE HYDROCHLORIDE
     Route: 064

REACTIONS (6)
  - Limb deformity [Unknown]
  - Talipes [Unknown]
  - Limb asymmetry [Unknown]
  - Meconium in amniotic fluid [Recovered/Resolved]
  - Foetal exposure during pregnancy [Recovered/Resolved]
  - Oligohydramnios [Recovered/Resolved]
